FAERS Safety Report 5674768-0 (Version None)
Quarter: 2008Q1

REPORT INFORMATION
  Report Type: 
  Country: None (occurrence: None)
  Receive Date: 20080320
  Receipt Date: 20080314
  Transmission Date: 20080703
  Serious: Yes (Hospitalization)
  Sender: FDA-Public Use
  Company Number: AU-MERCK-0803AUS00135

PATIENT
  Age: 91 Year
  Sex: Female
  Weight: 60 kg

DRUGS (2)
  1. FOSAMAX [Suspect]
     Indication: OSTEOPOROSIS
     Route: 048
  2. ATORVASTATIN CALCIUM [Concomitant]
     Indication: LIPIDS INCREASED
     Route: 065

REACTIONS (2)
  - FALL [None]
  - FEMUR FRACTURE [None]
